FAERS Safety Report 9340830 (Version 2)
Quarter: 2013Q2

REPORT INFORMATION
  Report Type: Spontaneous
  Country: CH (occurrence: None)
  Receive Date: 20130605
  Receipt Date: 20130628
  Transmission Date: 20140414
  Serious: Yes (Hospitalization)
  Sender: FDA-Public Use
  Company Number: TPG2013A00611

PATIENT
  Age: 73 Year
  Sex: Female

DRUGS (8)
  1. COMPETACT [Suspect]
     Indication: DIABETES MELLITUS
     Dosage: 15MG PIOGLITAZONE HCL/ 850 MG METFORMIN HCL
     Route: 048
     Dates: end: 20130508
  2. PANTOZOL [Suspect]
     Indication: PROPHYLAXIS
     Route: 048
     Dates: start: 20130427, end: 20130507
  3. MARCOUMAR (PHENORICOUMON) [Concomitant]
  4. EFEXOR (VENLAFAXINE HYDROCHLORIDE [Concomitant]
  5. BLOPRESS PLUS (CANDESARTAN CILEXETIL, HYDROCHLOROTHIAZIDE) [Concomitant]
  6. XANAX (ALPRZOLAM) [Concomitant]
  7. SIMVASTATIN (SIMVASTATIN) [Concomitant]
  8. SERESTA (OXAZEPAM) [Concomitant]

REACTIONS (14)
  - Lactic acidosis [None]
  - Vitamin B12 deficiency [None]
  - Diarrhoea [None]
  - Fall [None]
  - Renal failure chronic [None]
  - Renal failure acute [None]
  - Blood potassium increased [None]
  - Tubulointerstitial nephritis [None]
  - Renal tubular necrosis [None]
  - Vomiting [None]
  - Blood glucose decreased [None]
  - Metabolic acidosis [None]
  - Gait disturbance [None]
  - Chondrocalcinosis pyrophosphate [None]
